FAERS Safety Report 13319088 (Version 2)
Quarter: 2017Q1

REPORT INFORMATION
  Report Type: Spontaneous
  Country: US (occurrence: US)
  Receive Date: 20170310
  Receipt Date: 20170314
  Transmission Date: 20170428
  Serious: Yes (Other)
  Sender: FDA-Public Use
  Company Number: US-TEVA-747618USA

PATIENT
  Sex: Male

DRUGS (2)
  1. BUPROPION. [Suspect]
     Active Substance: BUPROPION
     Indication: DEPRESSION
  2. BUPROPION. [Suspect]
     Active Substance: BUPROPION
     Indication: ANXIETY
     Dates: start: 20170216

REACTIONS (8)
  - Dehydration [Recovered/Resolved]
  - Drug screen positive [Unknown]
  - Incoherent [Recovered/Resolved]
  - Feeling abnormal [Recovered/Resolved]
  - Drug screen false positive [Unknown]
  - Tremor [Recovered/Resolved]
  - Malaise [Recovered/Resolved]
  - Crying [Recovered/Resolved]

NARRATIVE: CASE EVENT DATE: 20170224
